FAERS Safety Report 8289602-2 (Version None)
Quarter: 2012Q2

REPORT INFORMATION
  Report Type: 
  Country: None (occurrence: None)
  Receive Date: 20120417
  Receipt Date: 20120411
  Transmission Date: 20120825
  Serious: No
  Sender: FDA-Public Use
  Company Number: IT-SANOFI-AVENTIS-2012SA025124

PATIENT
  Sex: Female

DRUGS (1)
  1. ARAVA [Suspect]
     Dosage: BETWEEN OCT-NOV 2011
     Route: 065
     Dates: start: 20110101, end: 20110101

REACTIONS (1)
  - MATERNAL EXPOSURE DURING PREGNANCY [None]
